FAERS Safety Report 6890606-2 (Version None)
Quarter: 2010Q3

REPORT INFORMATION
  Report Type: 
  Country: None (occurrence: None)
  Receive Date: 20100731
  Receipt Date: 20081229
  Transmission Date: 20110219
  Serious: No
  Sender: FDA-Public Use
  Company Number: US-PFIZER INC-2008160817

PATIENT
  Sex: Male
  Weight: 102.4 kg

DRUGS (5)
  1. LIPITOR [Suspect]
     Indication: BLOOD CHOLESTEROL INCREASED
     Dosage: UNK
     Route: 048
     Dates: start: 20040101, end: 20040101
  2. GLIPIZIDE [Concomitant]
     Indication: DIABETES MELLITUS
     Dosage: UNK
  3. BISOPROLOL [Concomitant]
     Indication: HYPERTENSION
     Dosage: UNK
  4. NIACIN [Concomitant]
     Dosage: UNK
  5. BACLOFEN [Concomitant]
     Indication: NAUSEA
     Dosage: UNK

REACTIONS (1)
  - BLOOD CHOLESTEROL INCREASED [None]
